FAERS Safety Report 13579759 (Version 1)
Quarter: 2017Q2

REPORT INFORMATION
  Report Type: Spontaneous
  Country: US (occurrence: US)
  Receive Date: 20170525
  Receipt Date: 20170525
  Transmission Date: 20170830
  Serious: Yes (Death, Other)
  Sender: FDA-Public Use
  Company Number: US-CLINIGEN GROUP PLC/ CLINIGEN HEALTHCARE LTD-US-CLGN-16-00107

PATIENT

DRUGS (3)
  1. GANCICLOVIR. [Suspect]
     Active Substance: GANCICLOVIR
     Indication: CYTOMEGALOVIRUS INFECTION
  2. FOSCARNET?SODIUM [Suspect]
     Active Substance: FOSCARNET SODIUM
     Indication: CYTOMEGALOVIRUS INFECTION
     Route: 042
  3. CIDOFOVIR. [Suspect]
     Active Substance: CIDOFOVIR
     Indication: CYTOMEGALOVIRUS INFECTION

REACTIONS (2)
  - Renal failure [Unknown]
  - Drug ineffective [Fatal]
